FAERS Safety Report 8990403 (Version 1)
Quarter: 2012Q4

REPORT INFORMATION
  Report Type: 
  Country: GR (occurrence: GR)
  Receive Date: 20121228
  Receipt Date: 20121228
  Transmission Date: 20130627
  Serious: Yes (Death, Other)
  Sender: FDA-Public Use
  Company Number: GR-B.I. PHARMACEUTICALS,INC./RIDGEFIELD-2012-BI-04158GB

PATIENT
  Age: 86 Year
  Sex: Female

DRUGS (2)
  1. PRADAXA [Suspect]
     Indication: ATRIAL FIBRILLATION
     Route: 048
     Dates: start: 20120122, end: 20120228
  2. LEGOFER [Suspect]
     Indication: MINERAL SUPPLEMENTATION
     Dosage: one 15ml vial contains 800mg iron protein succinylate, equivalent to 40 mg Fe+++
     Route: 048
     Dates: start: 20120211, end: 20120223

REACTIONS (2)
  - Death [Fatal]
  - Toxic epidermal necrolysis [Recovered/Resolved]
